FAERS Safety Report 5860359-5 (Version None)
Quarter: 2008Q3

REPORT INFORMATION
  Report Type: 
  Country: None (occurrence: None)
  Receive Date: 20080827
  Receipt Date: 20070822
  Transmission Date: 20090109
  Serious: No
  Sender: FDA-Public Use
  Company Number: US-ABBOTT-07P-163-0415374-00

PATIENT
  Sex: Female
  Weight: 113.4 kg

DRUGS (1)
  1. NIASPAN [Suspect]
     Indication: BLOOD CHOLESTEROL
     Route: 048
     Dates: start: 20070401, end: 20070701

REACTIONS (5)
  - ASTHMA [None]
  - NAUSEA [None]
  - PAROSMIA [None]
  - RASH [None]
  - VOMITING [None]
